FAERS Safety Report 15285936 (Version 1)
Quarter: 2018Q3

REPORT INFORMATION
  Report Type: Spontaneous
  Country: US (occurrence: US)
  Receive Date: 20180802
  Receipt Date: 20180802
  Transmission Date: 20181010
  Serious: Yes (Disabling)
  Sender: FDA-Public Use
  Company Number: None

PATIENT
  Age: 33 Year
  Sex: Female
  Weight: 134.55 kg

DRUGS (1)
  1. VALSARTAN/HCTZ 320/25 DF [Suspect]
     Active Substance: HYDROCHLOROTHIAZIDE\VALSARTAN
     Indication: BLOOD PRESSURE MEASUREMENT
     Route: 048
     Dates: end: 20180222

REACTIONS (1)
  - Hepatic fibrosis [None]

NARRATIVE: CASE EVENT DATE: 20180112
